FAERS Safety Report 13941209 (Version 3)
Quarter: 2018Q2

REPORT INFORMATION
  Report Type: Spontaneous
  Country: SE (occurrence: SE)
  Receive Date: 20170906
  Receipt Date: 20180420
  Transmission Date: 20180711
  Serious: Yes (Death, Other)
  Sender: FDA-Public Use
  Company Number: SE-ALEXION-A201709854

PATIENT
  Age: 55 Year
  Sex: Female
  Weight: 60 kg

DRUGS (6)
  1. XARELTO [Concomitant]
     Active Substance: RIVAROXABAN
     Indication: THROMBOSIS
     Dosage: UNK
     Route: 065
     Dates: start: 2014
  2. SOLIRIS [Suspect]
     Active Substance: ECULIZUMAB
     Indication: OFF LABEL USE
  3. SOLIRIS [Suspect]
     Active Substance: ECULIZUMAB
     Indication: PAROXYSMAL NOCTURNAL HAEMOGLOBINURIA
     Dosage: 1200 MG, UNK
     Route: 042
     Dates: start: 20110830
  4. SOLIRIS [Suspect]
     Active Substance: ECULIZUMAB
     Indication: HAEMOLYTIC ANAEMIA
  5. SOLIRIS [Suspect]
     Active Substance: ECULIZUMAB
     Indication: THROMBOSIS
     Dosage: 1200 MG, EVERY OTHER WEEK
     Route: 065
     Dates: start: 201501, end: 20170809
  6. WARFARIN [Concomitant]
     Active Substance: WARFARIN
     Indication: THROMBOSIS
     Dosage: UNK
     Route: 065
     Dates: start: 2011

REACTIONS (15)
  - Gastric disorder [Unknown]
  - Abnormal faeces [Unknown]
  - Brain injury [Unknown]
  - Haemolysis [Unknown]
  - Incorrect dose administered [Recovered/Resolved]
  - Diaphragmatic hernia [Fatal]
  - Ulcer [Unknown]
  - Haemoglobin decreased [Unknown]
  - Haemorrhage [Fatal]
  - Anaemia [Unknown]
  - Confusional state [Unknown]
  - Drug ineffective [Unknown]
  - Abdominal adhesions [Unknown]
  - Kidney enlargement [Unknown]
  - Off label use [Unknown]

NARRATIVE: CASE EVENT DATE: 2011
